FAERS Safety Report 9447297 (Version 1)
Quarter: 2013Q3

REPORT INFORMATION
  Report Type: Spontaneous
  Country: US (occurrence: US)
  Receive Date: 20130808
  Receipt Date: 20130808
  Transmission Date: 20140515
  Serious: Yes (Life-Threatening, Hospitalization, Other)
  Sender: FDA-Public Use
  Company Number: US-BIOGENIDEC-2013BI068896

PATIENT
  Age: 63 Year
  Sex: Female

DRUGS (4)
  1. TECFIDERA [Suspect]
     Indication: MULTIPLE SCLEROSIS
     Route: 048
  2. TECFIDERA [Suspect]
     Indication: MULTIPLE SCLEROSIS
     Route: 048
  3. PREDNISONE [Concomitant]
  4. AMPYRA [Concomitant]

REACTIONS (7)
  - Intensive care [Unknown]
  - Oxygen consumption decreased [Unknown]
  - Hypotension [Unknown]
  - Musculoskeletal disorder [Unknown]
  - Depressed mood [Unknown]
  - Milk allergy [Unknown]
  - Device leakage [Unknown]
